FAERS Safety Report 6523886-3 (Version None)
Quarter: 2009Q4

REPORT INFORMATION
  Report Type: 
  Country: None (occurrence: None)
  Receive Date: 20091231
  Receipt Date: 20091224
  Transmission Date: 20100525
  Serious: Yes (Other)
  Sender: FDA-Public Use
  Company Number: US-NAPPMUNDI-USA-2009-0041537

PATIENT
  Age: 62 Year
  Sex: Male

DRUGS (1)
  1. BETADINE [Suspect]
     Indication: WOUND TREATMENT

REACTIONS (1)
  - CONSCIOUSNESS FLUCTUATING [None]
